FAERS Safety Report 6310455-3 (Version None)
Quarter: 2009Q3

REPORT INFORMATION
  Report Type: 
  Country: None (occurrence: None)
  Receive Date: 20090811
  Receipt Date: 20090622
  Transmission Date: 20100115
  Serious: No
  Sender: FDA-Public Use
  Company Number: 1000006970

PATIENT
  Sex: Female

DRUGS (9)
  1. SAVELLA [Suspect]
     Dosage: SEE IMAGE
     Route: 048
     Dates: start: 20090607, end: 20090607
  2. SAVELLA [Suspect]
     Dosage: SEE IMAGE
     Route: 048
     Dates: start: 20090608, end: 20090609
  3. SAVELLA [Suspect]
     Dosage: SEE IMAGE
     Route: 048
     Dates: start: 20090610, end: 20090613
  4. SAVELLA [Suspect]
     Dosage: SEE IMAGE
     Route: 048
     Dates: start: 20090614
  5. NAMENDA [Concomitant]
  6. LYRICA [Concomitant]
  7. FENTANYL [Concomitant]
  8. ULTRAM [Concomitant]
  9. VICODIN [Concomitant]

REACTIONS (4)
  - FLUSHING [None]
  - NAUSEA [None]
  - PAIN [None]
  - SOMNOLENCE [None]
